FAERS Safety Report 5155509-2 (Version None)
Quarter: 2006Q4

REPORT INFORMATION
  Report Type: 
  Country: None (occurrence: None)
  Receive Date: 20061114
  Receipt Date: 20061101
  Transmission Date: 20070319
  Serious: Yes (Other)
  Sender: FDA-Public Use
  Company Number: 2006133638

PATIENT
  Age: 90 Year
  Sex: Male

DRUGS (2)
  1. LINEZOLID [Suspect]
  2. DULOXETINE HYDROCHLORIDE (DULOXETINE HYDROCHLORIDE) [Suspect]

REACTIONS (3)
  - DRUG INTERACTION [None]
  - SEROTONIN SYNDROME [None]
  - TREMOR [None]
